FAERS Safety Report 8382318-3 (Version None)
Quarter: 2012Q2

REPORT INFORMATION
  Report Type: 
  Country: None (occurrence: None)
  Receive Date: 20120524
  Receipt Date: 20120521
  Transmission Date: 20120825
  Serious: Yes (Hospitalization)
  Sender: FDA-Public Use
  Company Number: US-BAYER-2012-037893

PATIENT
  Age: 28 Year
  Sex: Female
  Weight: 60.771 kg

DRUGS (5)
  1. YASMIN [Suspect]
     Dosage: UNK
     Dates: start: 20060201, end: 20061001
  2. YAZ [Suspect]
     Dosage: UNK
     Dates: start: 20060201, end: 20061001
  3. ACETAMINOPHEN [Concomitant]
  4. IBUPROFEN (ADVIL) [Concomitant]
  5. IBUPROFEN [Concomitant]
     Dosage: 800 MG, UNK
     Dates: start: 20061016

REACTIONS (6)
  - EMOTIONAL DISTRESS [None]
  - DEPRESSION [None]
  - INJURY [None]
  - FEAR OF DEATH [None]
  - PULMONARY EMBOLISM [None]
  - NERVOUSNESS [None]
